FAERS Safety Report 14837453 (Version 12)
Quarter: 2022Q2

REPORT INFORMATION
  Report Type: Spontaneous
  Country: US (occurrence: US)
  Receive Date: 20180502
  Receipt Date: 20220623
  Transmission Date: 20220721
  Serious: No
  Sender: FDA-Public Use
  Company Number: US-PFIZER INC-2017441030

PATIENT
  Age: 7 Year
  Sex: Female
  Weight: 40 kg

DRUGS (7)
  1. RAPAMUNE [Suspect]
     Active Substance: SIROLIMUS
     Indication: Liver transplant rejection
     Dosage: 3.4 MG, DAILY
     Route: 048
     Dates: start: 20150701
  2. RAPAMUNE [Suspect]
     Active Substance: SIROLIMUS
     Dosage: 3.6 ML, DAILY (FOR 30 DAYS)
     Route: 048
     Dates: start: 20171009
  3. RAPAMUNE [Suspect]
     Active Substance: SIROLIMUS
     Dosage: 3.6 MG, DAILY
     Route: 048
  4. RAPAMUNE [Suspect]
     Active Substance: SIROLIMUS
     Dosage: 4.8 MG, DAILY
     Route: 048
  5. RAPAMUNE [Suspect]
     Active Substance: SIROLIMUS
     Dosage: 4.7 MG, DAILY
     Route: 048
  6. RAPAMUNE [Suspect]
     Active Substance: SIROLIMUS
     Dosage: 4 MG, DAILY (90 DAY SUPPLY)
     Route: 048
  7. RAPAMUNE [Suspect]
     Active Substance: SIROLIMUS
     Dosage: 3.5 MG, DAILY (3.5 ML)
     Route: 048

REACTIONS (3)
  - Off label use [Unknown]
  - Product use issue [Unknown]
  - Drug level decreased [Unknown]

NARRATIVE: CASE EVENT DATE: 20150701
